FAERS Safety Report 8096775-3 (Version None)
Quarter: 2012Q1

REPORT INFORMATION
  Report Type: 
  Country: None (occurrence: None)
  Receive Date: 20120129
  Receipt Date: 20111115
  Transmission Date: 20120608
  Serious: No
  Sender: FDA-Public Use
  Company Number: US-ABBOTT-11P-163-0863016-00

PATIENT
  Age: 36 Year
  Sex: Female

DRUGS (14)
  1. HUMIRA [Suspect]
     Indication: CROHN'S DISEASE
     Dosage: INITIAL DOSE
     Dates: start: 20110926, end: 20110926
  2. HUMIRA [Suspect]
     Dosage: 80 MG LOADING DOSE X1
     Dates: start: 20111114, end: 20111114
  3. NEXIUM [Concomitant]
     Indication: GASTROOESOPHAGEAL REFLUX DISEASE
     Dosage: FOR 10 YEARS DAILY FOR 10 YEARS
     Route: 048
  4. VITAMIN D [Concomitant]
     Indication: PRODUCT USED FOR UNKNOWN INDICATION
     Dosage: 1000 IU - 4 TIMES DAILY
  5. NOVALOG INSULIN [Concomitant]
     Indication: DIABETES MELLITUS
     Dosage: VIA INSULIN PUMP FOR 2 YEARS
  6. BIOTIN [Concomitant]
     Indication: PRODUCT USED FOR UNKNOWN INDICATION
  7. GLUCAGON [Concomitant]
     Indication: PRODUCT USED FOR UNKNOWN INDICATION
  8. LISINOPRIL [Concomitant]
     Indication: RENAL DISORDER
     Dosage: 1.5  TABLETS DAILY FOR 10 YEARS
     Route: 048
  9. OMEGA 3-6-9 [Concomitant]
     Indication: PRODUCT USED FOR UNKNOWN INDICATION
     Dosage: FATTY ACIDS
  10. PREDNISONE TAB [Concomitant]
     Indication: PRODUCT USED FOR UNKNOWN INDICATION
     Dosage: 5MG IN MORNING, 2.5MG AT BEDTIME
  11. SIMVASTATIN [Concomitant]
     Indication: BLOOD CHOLESTEROL INCREASED
     Dosage: 40,MG DAILY, FOR 10 YEARS
     Route: 048
  12. ASACOL [Concomitant]
     Indication: COLITIS
     Dosage: HD
     Dates: start: 20110820
  13. VICODIN [Concomitant]
     Indication: PRODUCT USED FOR UNKNOWN INDICATION
  14. ALIGN [Concomitant]
     Indication: PRODUCT USED FOR UNKNOWN INDICATION
     Dosage: PROBIOTIC DAILY

REACTIONS (3)
  - INJECTION SITE PAIN [None]
  - BRONCHITIS [None]
  - PRODUCTIVE COUGH [None]
